FAERS Safety Report 8967782 (Version 4)
Quarter: 2013Q3

REPORT INFORMATION
  Report Type: Spontaneous
  Country: NO (occurrence: None)
  Receive Date: 20121210
  Receipt Date: 20130823
  Transmission Date: 20140515
  Serious: Yes (Hospitalization, Other)
  Sender: FDA-Public Use
  Company Number: 1511315

PATIENT
  Age: 75 Year
  Sex: Male
  Weight: 33.11 kg

DRUGS (17)
  1. DOCETAXEL [Suspect]
     Indication: NON-SMALL CELL LUNG CANCER STAGE IV
     Route: 042
     Dates: start: 20121026, end: 20121119
  2. INVESTIGATIONAL DRUG [Suspect]
     Indication: NON-SMALL CELL LUNG CANCER STAGE IV
     Route: 042
     Dates: start: 20121026, end: 20121119
  3. ACETYSALICYLIC ACID W/MAGNESIUM [Concomitant]
  4. FUROSEMIDE [Concomitant]
  5. METOPROLOL SUCCINATE [Concomitant]
  6. ISOSORBIDE MONONITRATE [Concomitant]
  7. RAMIPRIL [Concomitant]
  8. LEVOTHYROXINE SODIUM [Concomitant]
  9. FENTANYL [Concomitant]
  10. PARACETAMOL [Concomitant]
  11. POTASSIUM CHLORIDE [Concomitant]
  12. NICOTINAMIDE [Concomitant]
  13. OXAZEPAM [Concomitant]
  14. ATORVASTATIN CALCIUM [Concomitant]
  15. DALTEPARIN SODIUM [Concomitant]
  16. MIRTAZAPINE [Concomitant]
  17. DEXAMETHASONE [Concomitant]

REACTIONS (10)
  - Dehydration [None]
  - General physical health deterioration [None]
  - Haemoglobin decreased [None]
  - Neutrophil count decreased [None]
  - Neutropenia [None]
  - Infection [None]
  - Diarrhoea [None]
  - Hypophagia [None]
  - White blood cell count decreased [None]
  - Urinary tract infection [None]
